FAERS Safety Report 24551121 (Version 1)
Quarter: 2024Q4

REPORT INFORMATION
  Report Type: Report from Study
  Country: FR (occurrence: FR)
  Receive Date: 20241025
  Receipt Date: 20241025
  Transmission Date: 20250114
  Serious: Yes (Other)
  Sender: ALEXION PHARMACEUTICALS
  Company Number: FR-ASTRAZENECA-202409GLO002165FR

PATIENT
  Age: 38 Year

DRUGS (5)
  1. OLAPARIB [Suspect]
     Active Substance: OLAPARIB
     Indication: Breast cancer stage II
     Dosage: 300 MILLIGRAM, BID
  2. EPIRUBICIN [Concomitant]
     Active Substance: EPIRUBICIN
     Indication: Breast cancer stage II
  3. CYCLOPHOSPHAMIDE [Concomitant]
     Active Substance: CYCLOPHOSPHAMIDE
     Indication: Breast cancer stage II
  4. PACLITAXEL [Concomitant]
     Active Substance: PACLITAXEL
     Indication: Breast cancer stage II
  5. CAPECITABINE [Concomitant]
     Active Substance: CAPECITABINE
     Indication: Breast cancer stage II

REACTIONS (1)
  - Interstitial lung disease [Recovered/Resolved]
